FAERS Safety Report 14212139 (Version 3)
Quarter: 2018Q1

REPORT INFORMATION
  Report Type: Spontaneous
  Country: TW (occurrence: TW)
  Receive Date: 20171121
  Receipt Date: 20180320
  Transmission Date: 20180508
  Serious: Yes (Death, Hospitalization, Other)
  Sender: FDA-Public Use
  Company Number: TW-BRISTOL-MYERS SQUIBB COMPANY-BMS-2017-104260

PATIENT
  Age: 60 Year
  Sex: Male
  Weight: 63.4 kg

DRUGS (1)
  1. OPDIVO [Suspect]
     Active Substance: NIVOLUMAB
     Indication: HEPATOCELLULAR CARCINOMA
     Dosage: 3 MG/KG, Q2WK
     Route: 042
     Dates: start: 20171006, end: 20171107

REACTIONS (8)
  - Abdominal pain [Unknown]
  - Nausea [Unknown]
  - Acute kidney injury [Unknown]
  - Product use in unapproved indication [Unknown]
  - Death [Fatal]
  - Hepatic failure [Unknown]
  - Decreased appetite [Unknown]
  - Vomiting [Unknown]

NARRATIVE: CASE EVENT DATE: 20171006
